FAERS Safety Report 15088761 (Version 1)
Quarter: 2018Q2

REPORT INFORMATION
  Report Type: Spontaneous
  Country: US (occurrence: US)
  Receive Date: 20180629
  Receipt Date: 20180629
  Transmission Date: 20180711
  Serious: No
  Sender: FDA-Public Use
  Company Number: US-PFIZER INC-2018262979

PATIENT
  Age: 73 Year
  Sex: Male

DRUGS (1)
  1. EUCRISA [Suspect]
     Active Substance: CRISABOROLE
     Indication: DERMATITIS ATOPIC
     Dosage: UNK, AS NEEDED [APPLY TO AFFECTED AREA TWICE A DAY]

REACTIONS (4)
  - Burning sensation [Unknown]
  - Skin irritation [Unknown]
  - Insomnia [Unknown]
  - Pruritus [Unknown]
